FAERS Safety Report 6063886-3 (Version None)
Quarter: 2009Q1

REPORT INFORMATION
  Report Type: 
  Country: None (occurrence: None)
  Receive Date: 20090130
  Receipt Date: 20090121
  Transmission Date: 20090719
  Serious: Yes (Death)
  Sender: FDA-Public Use
  Company Number: 2009US000129

PATIENT
  Sex: Male

DRUGS (2)
  1. MYCAMINE [Suspect]
     Indication: DRUG USE FOR UNKNOWN INDICATION
     Dates: start: 20080301
  2. PROGRAF [Suspect]
     Indication: DRUG USE FOR UNKNOWN INDICATION
     Dates: end: 20090101

REACTIONS (1)
  - DEATH [None]
